FAERS Safety Report 10730346 (Version 1)
Quarter: 2015Q1

REPORT INFORMATION
  Report Type: Spontaneous
  Country: US (occurrence: None)
  Receive Date: 20150121
  Receipt Date: 20150121
  Transmission Date: 20150721
  Serious: Yes (Disabling)
  Sender: FDA-Public Use
  Company Number: None

PATIENT
  Age: 38 Year
  Sex: Male
  Weight: 86.18 kg

DRUGS (1)
  1. ZITHROMAX [Suspect]
     Active Substance: AZITHROMYCIN DIHYDRATE
     Indication: URINARY TRACT INFECTION
     Dosage: 1 POWDER PACKET AS NEEDED TAKEN BY MOUTH
     Route: 048
     Dates: start: 20150118, end: 20150118

REACTIONS (6)
  - Dizziness [None]
  - Cardiac flutter [None]
  - Feeling abnormal [None]
  - Palpitations [None]
  - Anxiety [None]
  - Panic attack [None]

NARRATIVE: CASE EVENT DATE: 20150119
